FAERS Safety Report 8935295 (Version 1)
Quarter: 2012Q4

REPORT INFORMATION
  Report Type: 
  Country: US (occurrence: US)
  Receive Date: 20121129
  Receipt Date: 20121129
  Transmission Date: 20130627
  Serious: Yes (Death)
  Sender: FDA-Public Use
  Company Number: US-GLAXOSMITHKLINE-A1003268A

PATIENT
  Age: 57 Year
  Sex: Female

DRUGS (11)
  1. PROMACTA [Suspect]
     Indication: THROMBOCYTOPENIA
     Dosage: 50MG Per day
     Route: 048
     Dates: start: 20121024
  2. AMITRIPTYLINE [Concomitant]
  3. LASIX [Concomitant]
  4. KLOR-CON [Concomitant]
  5. LISINOPRIL [Concomitant]
  6. METFORMIN [Concomitant]
  7. NADOLOL [Concomitant]
  8. PRILOSEC [Concomitant]
  9. PAXIL [Concomitant]
  10. LOVASTATIN [Concomitant]
  11. VITAMIN D [Concomitant]

REACTIONS (1)
  - Neoplasm malignant [Fatal]
